FAERS Safety Report 7272403-1 (Version None)
Quarter: 2011Q1

REPORT INFORMATION
  Report Type: 
  Country: None (occurrence: None)
  Receive Date: 20110203
  Receipt Date: 20110127
  Transmission Date: 20110831
  Serious: Yes (Other)
  Sender: FDA-Public Use
  Company Number: GB-BAYER-2011-010681

PATIENT
  Age: 31 Year
  Sex: Female
  Weight: 60 kg

DRUGS (2)
  1. ERYTHROMYCIN [Interacting]
     Indication: ACNE
     Dosage: 500 MG, BID
     Route: 048
     Dates: start: 20100615, end: 20101001
  2. YASMIN, FILM-COATED TABLETS, 0.03 MG/3 MG [Suspect]
     Indication: CONTRACEPTION
     Dosage: UNK
     Route: 048
     Dates: start: 20100520, end: 20101001

REACTIONS (3)
  - PREGNANCY ON CONTRACEPTIVE [None]
  - DRUG INTERACTION [None]
  - DRUG EXPOSURE DURING PREGNANCY [None]
